FAERS Safety Report 5110740-7 (Version None)
Quarter: 2006Q3

REPORT INFORMATION
  Report Type: 
  Country: None (occurrence: None)
  Receive Date: 20060919
  Receipt Date: 20060905
  Transmission Date: 20061208
  Serious: Yes (Hospitalization)
  Sender: FDA-Public Use
  Company Number: CERZ-11319

PATIENT
  Age: 76 Year
  Sex: Female

DRUGS (8)
  1. CEREZYME [Suspect]
     Indication: GAUCHER'S DISEASE
     Dosage: 3400 UNITS Q2WKS IV
     Route: 042
     Dates: start: 19951016
  2. IRON [Concomitant]
  3. PROTONIX [Concomitant]
  4. ISORDIL [Concomitant]
  5. DIGOXIN [Concomitant]
  6. XANAX [Concomitant]
  7. NITRATES [Concomitant]
  8. CORGARD [Concomitant]

REACTIONS (6)
  - ARTERIOVENOUS MALFORMATION [None]
  - CANDIDIASIS [None]
  - DIVERTICULITIS [None]
  - GASTROENTERITIS VIRAL [None]
  - INTESTINAL POLYP [None]
  - SMALL INTESTINAL OBSTRUCTION [None]
